FAERS Safety Report 19661629 (Version 4)
Quarter: 2021Q3

REPORT INFORMATION
  Report Type: Spontaneous
  Country: CA (occurrence: CA)
  Receive Date: 20210805
  Receipt Date: 20210916
  Transmission Date: 20211014
  Serious: Yes (Hospitalization, Other)
  Sender: FDA-Public Use
  Company Number: CA-AUROBINDO-AUR-APL-2021-033522

PATIENT
  Age: 84 Year
  Sex: Male
  Weight: 80 kg

DRUGS (7)
  1. METRONIDAZOLE. [Concomitant]
     Active Substance: METRONIDAZOLE
     Indication: EVIDENCE BASED TREATMENT
     Dosage: 500 MILLIGRAM, TWO TIMES A DAY
     Route: 048
  2. CIPROFLOXACIN. [Suspect]
     Active Substance: CIPROFLOXACIN
     Indication: WOUND
     Dosage: 500 MILLIGRAM, TWO TIMES A DAY
     Route: 048
  3. GENTAMICIN. [Suspect]
     Active Substance: GENTAMICIN
     Indication: PSEUDOMONAS INFECTION
     Dosage: 160 MILLIGRAM, ONCE A DAY(4 WEEKS)
     Route: 042
  4. CEFTRIAXONE. [Concomitant]
     Active Substance: CEFTRIAXONE
     Indication: EVIDENCE BASED TREATMENT
     Dosage: 2 GRAM, ONCE A DAY
     Route: 042
  5. RAMIPRIL. [Suspect]
     Active Substance: RAMIPRIL
     Indication: PRODUCT USED FOR UNKNOWN INDICATION
     Dosage: UNK
     Route: 048
  6. CLOXACILLIN [Concomitant]
     Active Substance: CLOXACILLIN
     Indication: WOUND
     Dosage: UNK
     Route: 048
  7. ERTAPENEM. [Suspect]
     Active Substance: ERTAPENEM SODIUM
     Indication: WOUND
     Dosage: 1 GRAM, DAILY
     Route: 042

REACTIONS (2)
  - Acute kidney injury [Recovering/Resolving]
  - Drug ineffective [Unknown]
